FAERS Safety Report 26181418 (Version 1)
Quarter: 2025Q4

REPORT INFORMATION
  Report Type: Spontaneous
  Country: JP (occurrence: JP)
  Receive Date: 20251221
  Receipt Date: 20251221
  Transmission Date: 20260117
  Serious: Yes (Death)
  Sender: NOVARTIS
  Company Number: JP-002147023-NVSJ2025JP012202

PATIENT
  Age: 55 Year
  Sex: Male

DRUGS (3)
  1. EVEROLIMUS [Suspect]
     Active Substance: EVEROLIMUS
     Indication: Tuberous sclerosis complex
     Dosage: UNK
     Route: 065
  2. EVEROLIMUS [Suspect]
     Active Substance: EVEROLIMUS
     Indication: Renal perivascular epithelioid cell tumour
     Dosage: UNK, INCREASED THE DOSE
     Route: 065
  3. RAPAMYCIN [Concomitant]
     Active Substance: SIROLIMUS
     Indication: Tuberous sclerosis complex
     Dosage: UNK
     Route: 003

REACTIONS (13)
  - Perivascular epithelioid cell tumour [Fatal]
  - Tumour lysis syndrome [Fatal]
  - Malignant neoplasm progression [Fatal]
  - Metastases to lung [Fatal]
  - Respiratory failure [Fatal]
  - Pneumonia fungal [Fatal]
  - Dyspnoea [Fatal]
  - Pulmonary oedema [Fatal]
  - Renal perivascular epithelioid cell tumour [Fatal]
  - Disease recurrence [Fatal]
  - Hypertension [Unknown]
  - Proteinuria [Unknown]
  - Drug resistance [Unknown]
